FAERS Safety Report 4631104-6 (Version None)
Quarter: 2005Q2

REPORT INFORMATION
  Report Type: 
  Country: None (occurrence: None)
  Receive Date: 20050406
  Receipt Date: 20050406
  Transmission Date: 20051028
  Serious: No
  Sender: FDA-Public Use
  Company Number: None

PATIENT
  Age: 34 Year
  Sex: Female
  Weight: 58.97 kg

DRUGS (1)
  1. LACTATED RINGER'S [Suspect]
     Dates: start: 20050405

REACTIONS (4)
  - INFUSION SITE ERYTHEMA [None]
  - INFUSION SITE REACTION [None]
  - PRURITUS [None]
  - URTICARIA [None]
